FAERS Safety Report 8372968-2 (Version None)
Quarter: 2012Q2

REPORT INFORMATION
  Report Type: 
  Country: None (occurrence: None)
  Receive Date: 20120521
  Receipt Date: 20111116
  Transmission Date: 20120825
  Serious: No
  Sender: FDA-Public Use
  Company Number: US-ASTRAZENECA-2011SE73901

PATIENT
  Age: 33 Year
  Sex: Female

DRUGS (2)
  1. PRILOSEC OTC [Suspect]
     Route: 048
     Dates: start: 20111110, end: 20111115
  2. PAIN MEDICATION [Concomitant]

REACTIONS (5)
  - DYSGEUSIA [None]
  - ABDOMINAL DISTENSION [None]
  - FLATULENCE [None]
  - INCORRECT DOSE ADMINISTERED [None]
  - BREATH ODOUR [None]
